FAERS Safety Report 9837795 (Version 1)
Quarter: 2013Q4

REPORT INFORMATION
  Report Type: Spontaneous
  Country: GB (occurrence: None)
  Receive Date: 20131203
  Receipt Date: 20131203
  Transmission Date: 20140711
  Serious: Yes (Hospitalization, Other)
  Sender: FDA-Public Use
  Company Number: 2013GMK006948

PATIENT
  Age: 31 Year
  Sex: Female
  Weight: 46 kg

DRUGS (5)
  1. MONTELUKAST (MONTELUKAST) [Suspect]
     Indication: ASTHMA
     Route: 048
     Dates: start: 20110601, end: 20120116
  2. CO-CODAMOL (CODEINE PHOSPHATE, PARACETAMOL) [Concomitant]
  3. RIZATRIPTAN [Concomitant]
  4. SALBUTAMOL [Concomitant]
  5. SERETIDE (FLUTICASONE PROPIONATE, SALMETEROL XINAFOATE) [Concomitant]

REACTIONS (6)
  - Hepatitis [None]
  - Abdominal pain [None]
  - Liver function test abnormal [None]
  - Nausea [None]
  - Transaminases increased [None]
  - Vomiting [None]
